FAERS Safety Report 17436768 (Version 2)
Quarter: 2021Q1

REPORT INFORMATION
  Report Type: Spontaneous
  Country: US (occurrence: US)
  Receive Date: 20200219
  Receipt Date: 20210202
  Transmission Date: 20210419
  Serious: No
  Sender: FDA-Public Use
  Company Number: US-SA-2020SA041837

PATIENT
  Age: 63 Year
  Sex: Male

DRUGS (1)
  1. DUPIXENT [Suspect]
     Active Substance: DUPILUMAB
     Indication: ALCOHOLISM
     Dosage: 300 MG, QOW
     Route: 058

REACTIONS (8)
  - Eye pain [Unknown]
  - Product use in unapproved indication [Unknown]
  - Drug ineffective [Unknown]
  - Product dose omission issue [Unknown]
  - Influenza [Unknown]
  - Ocular discomfort [Unknown]
  - Illness [Unknown]
  - Vertigo [Unknown]
